FAERS Safety Report 25373658 (Version 1)
Quarter: 2025Q2

REPORT INFORMATION
  Report Type: Spontaneous
  Country: US (occurrence: US)
  Receive Date: 20250529
  Receipt Date: 20250529
  Transmission Date: 20250717
  Serious: No
  Sender: AMGEN
  Company Number: US-AMGEN-USASP2025101581

PATIENT
  Sex: Female

DRUGS (6)
  1. XGEVA [Suspect]
     Active Substance: DENOSUMAB
     Indication: Breast cancer
     Dosage: 120 MILLIGRAM, QMO, (START DATE: 2 YEAR AGO)
     Route: 058
  2. XGEVA [Suspect]
     Active Substance: DENOSUMAB
     Indication: Prophylaxis
  3. FULVESTRANT [Concomitant]
     Active Substance: FULVESTRANT
     Dosage: UNK UNK, QMO, (IN EACH HIP)
  4. IBRANCE [Concomitant]
     Active Substance: PALBOCICLIB
  5. IBRANCE [Concomitant]
     Active Substance: PALBOCICLIB
  6. CYMBALTA [Concomitant]
     Active Substance: DULOXETINE HYDROCHLORIDE
     Dosage: 60 MILLIGRAM, QD

REACTIONS (3)
  - Tooth fracture [Not Recovered/Not Resolved]
  - Tooth infection [Recovering/Resolving]
  - Off label use [Unknown]
